FAERS Safety Report 5107770-8 (Version None)
Quarter: 2006Q3

REPORT INFORMATION
  Report Type: 
  Country: None (occurrence: None)
  Receive Date: 20060919
  Receipt Date: 20060906
  Transmission Date: 20061208
  Serious: Yes (Death)
  Sender: FDA-Public Use
  Company Number: GB-AMGEN-UK192601

PATIENT
  Sex: Male
  Weight: 79 kg

DRUGS (8)
  1. KINERET [Suspect]
     Indication: RHEUMATOID ARTHRITIS
     Dates: start: 20030501, end: 20040415
  2. METHOTREXATE [Concomitant]
  3. PREDNISOLONE [Concomitant]
  4. CO-PROXAMOL [Concomitant]
  5. DICLOFENAC [Concomitant]
  6. DIDRONEL [Concomitant]
  7. FOLIC ACID [Concomitant]
  8. NEORAL [Concomitant]

REACTIONS (1)
  - OESOPHAGEAL CARCINOMA [None]
